FAERS Safety Report 6674631-2 (Version None)
Quarter: 2010Q2

REPORT INFORMATION
  Report Type: 
  Country: None (occurrence: None)
  Receive Date: 20100409
  Receipt Date: 20100407
  Transmission Date: 20101027
  Serious: Yes (Other)
  Sender: FDA-Public Use
  Company Number: RU-PFIZER INC-2010043685

PATIENT
  Age: 68 Year
  Sex: Female

DRUGS (2)
  1. CELEBREX [Suspect]
     Indication: OSTEOCHONDROSIS
     Dosage: 100 MG DAILY
     Route: 048
     Dates: start: 20100301
  2. ENAP [Concomitant]

REACTIONS (2)
  - BLOOD PRESSURE INCREASED [None]
  - PULSE ABSENT [None]
